FAERS Safety Report 7650977-6 (Version None)
Quarter: 2011Q3

REPORT INFORMATION
  Report Type: 
  Country: None (occurrence: None)
  Receive Date: 20110802
  Receipt Date: 20110720
  Transmission Date: 20111222
  Serious: Yes (Other)
  Sender: FDA-Public Use
  Company Number: US-ASTRAZENECA-2009UW00357

PATIENT
  Age: 50 Year
  Sex: Female
  Weight: 98.9 kg

DRUGS (11)
  1. HALDOL [Concomitant]
     Dates: start: 19960101
  2. XANAX [Concomitant]
     Dosage: 0.25 MG TK ONE T PO QHS PRN
     Dates: start: 20060630
  3. CELEXA [Concomitant]
     Dates: start: 20070501
  4. SEROQUEL [Suspect]
     Dosage: 200 MG TK 1 T PO BID AND TWO TS PO QHS UTD
     Route: 048
     Dates: start: 20060630
  5. HYDROXYZINE [Concomitant]
     Route: 048
     Dates: start: 20060630
  6. ABILIFY [Concomitant]
     Dates: start: 20070101
  7. METHADONE HYDROCHLORIDE [Concomitant]
     Dates: start: 20070227
  8. SEROQUEL [Suspect]
     Indication: DEPRESSION
     Dosage: 200 MG/400 MG
     Route: 048
     Dates: start: 20040101
  9. LIPITOR [Concomitant]
     Dates: start: 20070420
  10. XANAX [Concomitant]
  11. CELEXA [Concomitant]
     Route: 048
     Dates: start: 20060610

REACTIONS (5)
  - DIABETES MELLITUS [None]
  - BLOOD CHOLESTEROL INCREASED [None]
  - OBESITY [None]
  - SUICIDAL IDEATION [None]
  - MYOCARDIAL INFARCTION [None]
